FAERS Safety Report 5507593-1 (Version None)
Quarter: 2007Q4

REPORT INFORMATION
  Report Type: 
  Country: None (occurrence: None)
  Receive Date: 20071102
  Receipt Date: 20071024
  Transmission Date: 20080405
  Serious: Yes (Hospitalization)
  Sender: FDA-Public Use
  Company Number: TPA2007A01958

PATIENT
  Age: 65 Year
  Sex: Female

DRUGS (9)
  1. PIOGLITAZONE HCL [Suspect]
     Indication: GLUCOSE TOLERANCE IMPAIRED
     Dosage: PER ORAL
     Route: 048
     Dates: start: 20051115, end: 20070524
  2. JANUVIA (ALL OTHER THERAPEUTIC PRODUCTS) [Concomitant]
  3. LIPITOR [Concomitant]
  4. SYNTHROID [Concomitant]
  5. ASPIRIN [Concomitant]
  6. DIOVAN [Concomitant]
  7. VICODIN (PARACETAMOL, HYDROCODONE BITARTRATE) (TABLETS) [Concomitant]
  8. FENTANYL (FENTANYL) (POULTICE OR PATCH) [Concomitant]
  9. CYMBALTA [Concomitant]

REACTIONS (6)
  - ARTHRALGIA [None]
  - CHEST DISCOMFORT [None]
  - CHEST PAIN [None]
  - CONTUSION [None]
  - DYSPEPSIA [None]
  - FALL [None]
